FAERS Safety Report 16785382 (Version 1)
Quarter: 2019Q3

REPORT INFORMATION
  Report Type: Spontaneous
  Country: US (occurrence: US)
  Receive Date: 20190909
  Receipt Date: 20190909
  Transmission Date: 20191005
  Serious: No
  Sender: FDA-Public Use
  Company Number: US-MYLANLABS-2019M1080913

PATIENT
  Age: 78 Year
  Sex: Male
  Weight: 101.13 kg

DRUGS (2)
  1. MUSE [Suspect]
     Active Substance: ALPROSTADIL
     Indication: ERECTILE DYSFUNCTION
     Dosage: UNK
     Route: 066
  2. MUSE [Suspect]
     Active Substance: ALPROSTADIL
     Dosage: UNK, PRN
     Route: 066
     Dates: start: 201908

REACTIONS (2)
  - Product availability issue [Unknown]
  - Drug ineffective [Not Recovered/Not Resolved]

NARRATIVE: CASE EVENT DATE: 201908
